FAERS Safety Report 7170131-4 (Version None)
Quarter: 2010Q4

REPORT INFORMATION
  Report Type: 
  Country: None (occurrence: None)
  Receive Date: 20101214
  Receipt Date: 20101214
  Transmission Date: 20110411
  Serious: Yes (Other)
  Sender: FDA-Public Use
  Company Number: None

PATIENT
  Sex: Female
  Weight: 61.2356 kg

DRUGS (1)
  1. CIPRO [Suspect]
     Indication: CYSTITIS
     Dates: start: 20091101

REACTIONS (2)
  - OEDEMA PERIPHERAL [None]
  - TENDONITIS [None]
